FAERS Safety Report 6695158-8 (Version None)
Quarter: 2010Q2

REPORT INFORMATION
  Report Type: 
  Country: None (occurrence: None)
  Receive Date: 20100423
  Receipt Date: 20100414
  Transmission Date: 20101027
  Serious: Yes (Hospitalization)
  Sender: FDA-Public Use
  Company Number: US-CELGENEUS-163-21880-10040370

PATIENT
  Sex: Female

DRUGS (2)
  1. REVLIMID [Suspect]
     Indication: MULTIPLE MYELOMA
     Route: 048
     Dates: start: 20090622
  2. REVLIMID [Suspect]
     Route: 048
     Dates: start: 20100101

REACTIONS (3)
  - ASTHMA [None]
  - DYSPNOEA [None]
  - HEADACHE [None]
